FAERS Safety Report 15601552 (Version 4)
Quarter: 2019Q3

REPORT INFORMATION
  Report Type: Report from Study
  Country: US (occurrence: US)
  Receive Date: 20181109
  Receipt Date: 20190705
  Transmission Date: 20191004
  Serious: Yes (Death, Life-Threatening, Other)
  Sender: FDA-Public Use
  Company Number: PHEH2018US047234

PATIENT
  Age: 1 Year
  Sex: Male
  Weight: 13 kg

DRUGS (4)
  1. KYMRIAH [Suspect]
     Active Substance: TISAGENLECLEUCEL
     Indication: B-CELL TYPE ACUTE LEUKAEMIA
     Dosage: 10 ML, ONCE/SINGLE
     Route: 042
     Dates: start: 20180904
  2. FLUDARABINE [Concomitant]
     Active Substance: FLUDARABINE PHOSPHATE
     Indication: CHEMOTHERAPY
     Route: 065
  3. KYMRIAH [Suspect]
     Active Substance: TISAGENLECLEUCEL
     Dosage: UNK UNK, ONCE/SINGLE
     Route: 042
     Dates: start: 20180919
  4. CYCLOPHOSPHAMIDE. [Concomitant]
     Active Substance: CYCLOPHOSPHAMIDE
     Indication: CHEMOTHERAPY
     Route: 065

REACTIONS (12)
  - Acute respiratory failure [Fatal]
  - Malignant neoplasm progression [Unknown]
  - Platelet count decreased [Unknown]
  - Minimal residual disease [Unknown]
  - Drug ineffective [Unknown]
  - Venoocclusive disease [Fatal]
  - Acute lymphocytic leukaemia recurrent [Not Recovered/Not Resolved]
  - Haematocrit decreased [Unknown]
  - White blood cell count decreased [Unknown]
  - Lymphocyte count decreased [Unknown]
  - Haemoglobin decreased [Unknown]
  - Neutrophil count decreased [Unknown]

NARRATIVE: CASE EVENT DATE: 20181017
